FAERS Safety Report 7384843-0 (Version None)
Quarter: 2011Q1

REPORT INFORMATION
  Report Type: 
  Country: None (occurrence: None)
  Receive Date: 20110330
  Receipt Date: 20110316
  Transmission Date: 20110831
  Serious: Yes (Hospitalization)
  Sender: FDA-Public Use
  Company Number: CA-JNJFOC-20110307967

PATIENT
  Sex: Female
  Weight: 50 kg

DRUGS (8)
  1. ATIVAN [Concomitant]
     Route: 065
  2. REMICADE [Suspect]
     Indication: CROHN'S DISEASE
     Route: 042
  3. MORPHINE [Concomitant]
     Route: 065
  4. XANAX [Concomitant]
     Route: 065
  5. REMICADE [Suspect]
     Indication: BEHCET'S SYNDROME
     Route: 042
  6. ALPRAZOLAM [Concomitant]
     Route: 065
  7. STATEX [Concomitant]
     Route: 065
  8. IMOVANE [Concomitant]
     Route: 065

REACTIONS (5)
  - HEART RATE INCREASED [None]
  - OXYGEN SATURATION DECREASED [None]
  - PYREXIA [None]
  - SINUSITIS [None]
  - ABASIA [None]
